FAERS Safety Report 9184109 (Version 1)
Quarter: 2012Q4

REPORT INFORMATION
  Report Type: 
  Country: GB (occurrence: GB)
  Receive Date: 20121031
  Receipt Date: 20121031
  Transmission Date: 20130627
  Serious: Yes (Other)
  Sender: FDA-Public Use
  Company Number: GB-009507513-1210GBR012127

PATIENT
  Age: 24 Year
  Sex: Female

DRUGS (1)
  1. NEXPLANON [Suspect]
     Indication: CONTRACEPTION
     Dosage: 68 mg, UNK
     Dates: start: 20120927, end: 20121012

REACTIONS (4)
  - Vision blurred [Unknown]
  - Migraine [Unknown]
  - Migraine with aura [Recovered/Resolved]
  - Hypoaesthesia [Unknown]
